FAERS Safety Report 13172025 (Version 1)
Quarter: 2017Q1

REPORT INFORMATION
  Report Type: Spontaneous
  Country: US (occurrence: US)
  Receive Date: 20170130
  Receipt Date: 20170130
  Transmission Date: 20170428
  Serious: Yes (Hospitalization)
  Sender: FDA-Public Use
  Company Number: None

PATIENT
  Age: 53 Year
  Sex: Male
  Weight: 84.82 kg

DRUGS (29)
  1. TYLENOL [Concomitant]
     Active Substance: ACETAMINOPHEN
  2. DECADRON [Concomitant]
     Active Substance: DEXAMETHASONE
  3. PLASMA LYTE [Concomitant]
  4. ZOFRAN [Concomitant]
     Active Substance: ONDANSETRON HYDROCHLORIDE
  5. PEPCID [Concomitant]
     Active Substance: FAMOTIDINE
  6. BACITRACIN. [Concomitant]
     Active Substance: BACITRACIN
  7. BUPIVACAINE. [Concomitant]
     Active Substance: BUPIVACAINE
  8. REGLAN [Concomitant]
     Active Substance: METOCLOPRAMIDE HYDROCHLORIDE
  9. LOVENOX [Concomitant]
     Active Substance: ENOXAPARIN SODIUM
  10. PANTOPRAZOLE [Concomitant]
     Active Substance: PANTOPRAZOLE SODIUM
  11. EDISYLATE [Concomitant]
  12. PRILOSEC [Concomitant]
     Active Substance: OMEPRAZOLE MAGNESIUM
  13. TUMS [Concomitant]
     Active Substance: CALCIUM CARBONATE
  14. SENNA [Concomitant]
     Active Substance: SENNA LEAF\SENNOSIDES\SENNOSIDES A AND B
  15. FLU VAC [Concomitant]
  16. EPCLUSA [Suspect]
     Active Substance: SOFOSBUVIR\VELPATASVIR
     Indication: HEPATITIS C
     Dosage: 400MG/100MG QD ORAL
     Route: 048
     Dates: start: 20160814, end: 20161106
  17. ATROPINE SULFATE. [Concomitant]
     Active Substance: ATROPINE SULFATE
  18. FENTANYL CITRATE. [Concomitant]
     Active Substance: FENTANYL CITRATE
  19. PROCHLORPERAZINE. [Concomitant]
     Active Substance: PROCHLORPERAZINE
  20. DOCUSATE SODIUM. [Concomitant]
     Active Substance: DOCUSATE SODIUM
  21. BENZOCAINE. [Concomitant]
     Active Substance: BENZOCAINE
  22. DILAUDID [Concomitant]
     Active Substance: HYDROMORPHONE HYDROCHLORIDE
  23. IBUPROFEN. [Concomitant]
     Active Substance: IBUPROFEN
  24. TORADOL [Concomitant]
     Active Substance: KETOROLAC TROMETHAMINE
  25. TRAMADOL. [Concomitant]
     Active Substance: TRAMADOL
  26. SODIUM CHLORIDE. [Concomitant]
     Active Substance: SODIUM CHLORIDE
  27. MEPERIDINE HCL [Concomitant]
     Active Substance: MEPERIDINE HYDROCHLORIDE
  28. OXYCODONE [Concomitant]
     Active Substance: OXYCODONE
  29. PNEUMOVAX 23 [Concomitant]
     Active Substance: PNEUMOCOCCAL VACCINE, POLYVALENT 23

REACTIONS (4)
  - Abdominal pain [None]
  - Inguinal hernia repair [None]
  - Gastrointestinal inflammation [None]
  - Scrotal pain [None]

NARRATIVE: CASE EVENT DATE: 20161004
